FAERS Safety Report 14406861 (Version 2)
Quarter: 2018Q2

REPORT INFORMATION
  Report Type: Spontaneous
  Country: US (occurrence: US)
  Receive Date: 20180118
  Receipt Date: 20180508
  Transmission Date: 20180711
  Serious: Yes (Hospitalization)
  Sender: FDA-Public Use
  Company Number: US-DSJP-DSU-2017-144639

PATIENT

DRUGS (3)
  1. BENICAR HCT [Suspect]
     Active Substance: HYDROCHLOROTHIAZIDE\OLMESARTAN MEDOXOMIL
     Indication: PRODUCT USED FOR UNKNOWN INDICATION
     Dosage: 40-12.5 MG,QD
     Route: 048
     Dates: start: 20031208, end: 20170127
  2. BENICAR [Suspect]
     Active Substance: OLMESARTAN MEDOXOMIL
     Indication: PRODUCT USED FOR UNKNOWN INDICATION
     Dosage: UNK
     Dates: start: 20031208, end: 20170127
  3. BENICAR HCT [Suspect]
     Active Substance: HYDROCHLOROTHIAZIDE\OLMESARTAN MEDOXOMIL
     Dosage: 40-25 MG,QD
     Route: 048
     Dates: start: 20031208, end: 20170127

REACTIONS (10)
  - Gastritis [Recovering/Resolving]
  - Haemorrhoids thrombosed [Unknown]
  - Gastroenteritis [Recovering/Resolving]
  - Colitis ulcerative [Recovering/Resolving]
  - Cholecystitis [Recovered/Resolved]
  - Hepatocellular injury [Unknown]
  - Diverticulum [Unknown]
  - Gastrooesophageal reflux disease [Unknown]
  - Proctitis ulcerative [Recovering/Resolving]
  - Large intestine perforation [Recovered/Resolved]

NARRATIVE: CASE EVENT DATE: 20030804
